FAERS Safety Report 6312273-9 (Version None)
Quarter: 2009Q3

REPORT INFORMATION
  Report Type: 
  Country: None (occurrence: None)
  Receive Date: 20090813
  Receipt Date: 20090804
  Transmission Date: 20100115
  Serious: Yes (Death, Other)
  Sender: FDA-Public Use
  Company Number: 2006-06-0620

PATIENT
  Sex: Female

DRUGS (2)
  1. TEMODAL [Suspect]
     Indication: GLIOMA
     Dosage: PO
     Route: 048
  2. BACTRIM [Suspect]
     Indication: DRUG USE FOR UNKNOWN INDICATION
     Dosage: PO
     Route: 048

REACTIONS (4)
  - DEEP VEIN THROMBOSIS [None]
  - PARKINSONISM [None]
  - RASH GENERALISED [None]
  - SIMPLE PARTIAL SEIZURES [None]
